FAERS Safety Report 8371672-4 (Version None)
Quarter: 2012Q2

REPORT INFORMATION
  Report Type: 
  Country: None (occurrence: None)
  Receive Date: 20120518
  Receipt Date: 20120515
  Transmission Date: 20120825
  Serious: Yes (Disabling, Other)
  Sender: FDA-Public Use
  Company Number: US-PFIZER INC-2012081791

PATIENT
  Age: 57 Year
  Sex: Female
  Weight: 59 kg

DRUGS (4)
  1. EFFEXOR XR [Suspect]
     Dosage: 75 (UNITS NOT PROVIDED), UNK
     Dates: start: 20020101
  2. XANAX [Concomitant]
     Dosage: 0.25 MG, ONCE EVERY TWO WEEKS
  3. ELAVIL [Concomitant]
     Indication: INSOMNIA
     Dosage: 10 MG, DAILY
     Dates: start: 19930101
  4. EFFEXOR XR [Suspect]
     Indication: DEPRESSION
     Dosage: 75 MG, DAILY
     Route: 048
     Dates: start: 20010101, end: 20110901

REACTIONS (3)
  - CEREBROVASCULAR ACCIDENT [None]
  - MEMORY IMPAIRMENT [None]
  - ENDOCARDITIS [None]
